FAERS Safety Report 21257241 (Version 1)
Quarter: 2022Q3

REPORT INFORMATION
  Report Type: Spontaneous
  Country: ES (occurrence: ES)
  Receive Date: 20220826
  Receipt Date: 20220826
  Transmission Date: 20221027
  Serious: Yes (Hospitalization, Other)
  Sender: FDA-Public Use
  Company Number: ES-AEMPS-1241917

PATIENT
  Age: 72 Year
  Sex: Female

DRUGS (4)
  1. FUROSEMIDE [Interacting]
     Active Substance: FUROSEMIDE
     Indication: Hypertension
     Dosage: 40 MILLIGRAM, TWO TIMES A DAY (40 MG 2 VECES AL D?A)
     Route: 048
     Dates: start: 20220513, end: 20220524
  2. HYDROCHLOROTHIAZIDE\LOSARTAN [Interacting]
     Active Substance: HYDROCHLOROTHIAZIDE\LOSARTAN
     Indication: Hypertension
     Dosage: 50 MILLIGRAM, TWO TIMES A DAY (50 MG CADA 24 HORAS)
     Route: 048
     Dates: start: 20211008, end: 20220524
  3. SPIRONOLACTONE [Interacting]
     Active Substance: SPIRONOLACTONE
     Indication: Product used for unknown indication
     Dosage: 100 MILLIGRAM, TWO TIMES A DAY (100 MG CADA 24 H)
     Route: 048
     Dates: start: 20220513, end: 20220524
  4. AMIODARONE [Concomitant]
     Active Substance: AMIODARONE
     Indication: Product used for unknown indication
     Dosage: 100 MILLIGRAM, TWO TIMES A DAY (100 MG CADA 24 HORAS)
     Route: 048
     Dates: start: 20220513, end: 20220524

REACTIONS (3)
  - Acute kidney injury [Recovering/Resolving]
  - Hyperkalaemia [Recovered/Resolved]
  - Hyponatraemia [Recovered/Resolved]

NARRATIVE: CASE EVENT DATE: 20220524
